FAERS Safety Report 6898842-6 (Version None)
Quarter: 2010Q3

REPORT INFORMATION
  Report Type: 
  Country: None (occurrence: None)
  Receive Date: 20100802
  Receipt Date: 20071203
  Transmission Date: 20110219
  Serious: No
  Sender: FDA-Public Use
  Company Number: US-PFIZER INC-2007102530

PATIENT
  Age: 44 Year
  Sex: Female
  Weight: 56.818 kg

DRUGS (5)
  1. LYRICA [Suspect]
     Indication: FIBROMYALGIA
     Dates: start: 20070101
  2. SOMA [Concomitant]
  3. ULTRAM [Concomitant]
  4. MULTI-VITAMINS [Concomitant]
  5. FISH OIL [Concomitant]

REACTIONS (2)
  - MYOCLONUS [None]
  - SOMNOLENCE [None]
